FAERS Safety Report 9778630 (Version 1)
Quarter: 2013Q4

REPORT INFORMATION
  Report Type: Spontaneous
  Country: IT (occurrence: IT)
  Receive Date: 20131223
  Receipt Date: 20131223
  Transmission Date: 20140711
  Serious: Yes (Other)
  Sender: FDA-Public Use
  Company Number: IT-DRREDDYS-GER/ITL/13/0036413

PATIENT
  Age: 54 Year
  Sex: Male
  Weight: 95 kg

DRUGS (5)
  1. FINASTERIDE [Suspect]
     Indication: BENIGN PROSTATIC HYPERPLASIA
     Route: 048
     Dates: start: 20131116, end: 20131119
  2. TACHIDOL [Interacting]
     Indication: BACK PAIN
     Route: 048
     Dates: start: 20131115, end: 20131118
  3. UROREC [Interacting]
     Indication: BENIGN PROSTATIC HYPERPLASIA
     Route: 048
     Dates: start: 20131116, end: 20131119
  4. MODITEN DEPOT [Concomitant]
     Indication: PRODUCT USED FOR UNKNOWN INDICATION
     Route: 030
     Dates: start: 20110101, end: 20131119
  5. EN [Concomitant]
     Indication: ANXIETY
     Route: 048
     Dates: start: 20040101, end: 20131119

REACTIONS (3)
  - Fluid retention [Not Recovered/Not Resolved]
  - Renal pain [Not Recovered/Not Resolved]
  - Drug interaction [Unknown]
